FAERS Safety Report 4789518-X (Version None)
Quarter: 2005Q4

REPORT INFORMATION
  Report Type: 
  Country: None (occurrence: None)
  Receive Date: 20051005
  Receipt Date: 20051005
  Transmission Date: 20060501
  Serious: Yes (Life-Threatening, Hospitalization)
  Sender: FDA-Public Use
  Company Number: None

PATIENT
  Age: 46 Year
  Sex: Female

DRUGS (1)
  1. WARFARIN [Suspect]
     Indication: THROMBOSIS PROPHYLAXIS
     Dosage: 2 MG PO QD
     Route: 048

REACTIONS (6)
  - ABDOMINAL PAIN [None]
  - DIZZINESS [None]
  - HAEMATEMESIS [None]
  - MELAENA [None]
  - NAUSEA [None]
  - VOMITING [None]
